FAERS Safety Report 10698259 (Version 2)
Quarter: 2015Q1

REPORT INFORMATION
  Report Type: Spontaneous
  Country: US (occurrence: US)
  Receive Date: 20150108
  Receipt Date: 20150119
  Transmission Date: 20150721
  Serious: Yes (Hospitalization, Other)
  Sender: FDA-Public Use
  Company Number: US-APOTEX-2015AP005013

PATIENT
  Age: 23 Year
  Sex: Female

DRUGS (3)
  1. METAXALONE. [Suspect]
     Active Substance: METAXALONE
     Indication: BACK PAIN
     Dosage: 12 G, SINGLE
     Route: 048
  2. NAPROXEN. [Suspect]
     Active Substance: NAPROXEN
     Indication: BACK PAIN
     Route: 048
  3. TRAMADOL HYDROCHLORIDE. [Suspect]
     Active Substance: TRAMADOL HYDROCHLORIDE
     Indication: BACK PAIN
     Dosage: 1.5 G, SINGLE
     Route: 048

REACTIONS (6)
  - Respiratory depression [None]
  - Blood prolactin increased [None]
  - Suicidal behaviour [Recovering/Resolving]
  - Serotonin syndrome [Recovering/Resolving]
  - Overdose [Recovering/Resolving]
  - Status epilepticus [Recovering/Resolving]
